FAERS Safety Report 18292537 (Version 1)
Quarter: 2020Q3

REPORT INFORMATION
  Report Type: Spontaneous
  Country: ES (occurrence: ES)
  Receive Date: 20200922
  Receipt Date: 20200922
  Transmission Date: 20201103
  Serious: Yes (Hospitalization, Other)
  Sender: FDA-Public Use
  Company Number: ES-AUROBINDO-AUR-APL-2020-048462

PATIENT
  Age: 50 Year
  Sex: Male

DRUGS (3)
  1. CITALOPRAM [Suspect]
     Active Substance: CITALOPRAM HYDROBROMIDE
     Indication: SCHIZOAFFECTIVE DISORDER
     Dosage: UNK
     Route: 065
  2. CLOZAPINE. [Suspect]
     Active Substance: CLOZAPINE
     Indication: SCHIZOAFFECTIVE DISORDER
     Dosage: UNK
     Route: 065
  3. LITHIUM. [Suspect]
     Active Substance: LITHIUM
     Indication: SCHIZOAFFECTIVE DISORDER
     Dosage: UNK
     Route: 065

REACTIONS (12)
  - Brugada syndrome [Recovered/Resolved]
  - Metabolic disorder [Recovered/Resolved]
  - Leukocytosis [Recovered/Resolved]
  - Disorientation [Recovered/Resolved]
  - Antipsychotic drug level increased [Recovered/Resolved]
  - Metabolic acidosis [Recovered/Resolved]
  - Septic shock [Recovered/Resolved]
  - Hypotension [Recovered/Resolved]
  - Electrocardiogram ST segment elevation [Recovered/Resolved]
  - General physical health deterioration [Recovered/Resolved]
  - Neutrophilia [Recovered/Resolved]
  - Bundle branch block right [Recovered/Resolved]
